FAERS Safety Report 12379620 (Version 3)
Quarter: 2016Q3

REPORT INFORMATION
  Report Type: Spontaneous
  Country: US (occurrence: US)
  Receive Date: 20160518
  Receipt Date: 20160810
  Transmission Date: 20161109
  Serious: Yes (Other)
  Sender: FDA-Public Use
  Company Number: US-ROCHE-1756676

PATIENT
  Sex: Male

DRUGS (3)
  1. PEGASYS [Suspect]
     Active Substance: PEGINTERFERON ALFA-2A
     Indication: HEPATITIS C
     Route: 065
     Dates: start: 2010, end: 2011
  2. PEGASYS [Suspect]
     Active Substance: PEGINTERFERON ALFA-2A
     Indication: HEPATIC CANCER
  3. COPEGUS [Suspect]
     Active Substance: RIBAVIRIN
     Indication: HEPATITIS
     Route: 065

REACTIONS (12)
  - Judgement impaired [Not Recovered/Not Resolved]
  - Loss of consciousness [Unknown]
  - Product quality issue [Unknown]
  - Weight decreased [Recovered/Resolved]
  - Vomiting [Recovered/Resolved]
  - Skin ulcer [Recovered/Resolved]
  - Migraine [Unknown]
  - Blood pressure decreased [Unknown]
  - Crying [Not Recovered/Not Resolved]
  - Anxiety [Unknown]
  - Cerebrovascular accident [Unknown]
  - Hypertension [Unknown]
